FAERS Safety Report 7977200-7 (Version None)
Quarter: 2011Q4

REPORT INFORMATION
  Report Type: 
  Country: None (occurrence: None)
  Receive Date: 20111213
  Receipt Date: 20111109
  Transmission Date: 20120403
  Serious: No
  Sender: FDA-Public Use
  Company Number: US-AMGEN-TCS431767

PATIENT
  Age: 58 Year
  Sex: Female

DRUGS (3)
  1. ENBREL [Suspect]
     Indication: RHEUMATOID ARTHRITIS
     Dosage: 25 MG, 2 TIMES/WK
     Route: 058
     Dates: start: 20030901
  2. UNSPECIFIED MEDICATION [Concomitant]
     Dosage: UNK
  3. TREXALL [Concomitant]
     Dosage: 15 MG, QWK
     Dates: start: 20100901

REACTIONS (8)
  - BONE EROSION [None]
  - PAIN IN EXTREMITY [None]
  - OEDEMA PERIPHERAL [None]
  - C-REACTIVE PROTEIN INCREASED [None]
  - RHEUMATOID ARTHRITIS [None]
  - THERAPEUTIC RESPONSE DECREASED [None]
  - ARTHRALGIA [None]
  - JOINT SWELLING [None]
